FAERS Safety Report 17102267 (Version 2)
Quarter: 2021Q1

REPORT INFORMATION
  Report Type: Report from Study
  Country: CA (occurrence: CA)
  Receive Date: 20191202
  Receipt Date: 20210128
  Transmission Date: 20210419
  Serious: Yes (Hospitalization)
  Sender: FDA-Public Use
  Company Number: CA-JNJFOC-20191135457

PATIENT
  Age: 74 Year
  Sex: Female
  Weight: 118 kg

DRUGS (7)
  1. DARZALEX [Suspect]
     Active Substance: DARATUMUMAB
     Indication: PLASMA CELL MYELOMA
     Dosage: HELD FOR 2 WEEKS.
     Route: 042
     Dates: start: 20191030
  2. BORTEZOMIB. [Concomitant]
     Active Substance: BORTEZOMIB
     Indication: PLASMA CELL MYELOMA
     Dosage: HELD FOR 2 WEEKS AND RESTARTED.
     Route: 065
  3. ZOPICLONE [Concomitant]
     Active Substance: ZOPICLONE
     Indication: SLEEP DISORDER
     Route: 065
  4. MONTELUKAST [Concomitant]
     Active Substance: MONTELUKAST SODIUM
     Indication: PRODUCT USED FOR UNKNOWN INDICATION
     Dosage: 10 MG AT BEDTIME PRIOR TO DARATUMUMAB
     Route: 065
     Dates: start: 20191029
  5. DEXAMETHASONE. [Concomitant]
     Active Substance: DEXAMETHASONE
     Indication: PLASMA CELL MYELOMA
     Dosage: 20 MG A DAY AFTER EACH CHEMO.
     Route: 065
  6. VITAMIN D3 [Concomitant]
     Active Substance: CHOLECALCIFEROL
     Indication: NUTRITIONAL SUPPLEMENTATION
     Route: 065
  7. DARZALEX [Suspect]
     Active Substance: DARATUMUMAB
     Dosage: HELD FOR 2 WEEKS.
     Route: 042
     Dates: start: 20191116

REACTIONS (5)
  - Constipation [Unknown]
  - Off label use [Unknown]
  - Tumour lysis syndrome [Unknown]
  - Incorrect dose administered [Unknown]
  - Renal failure [Unknown]

NARRATIVE: CASE EVENT DATE: 20191030
